FAERS Safety Report 13263016 (Version 1)
Quarter: 2017Q1

REPORT INFORMATION
  Report Type: Spontaneous
  Country: US (occurrence: US)
  Receive Date: 20170221
  Receipt Date: 20170221
  Transmission Date: 20170428
  Serious: No
  Sender: FDA-Public Use
  Company Number: None

PATIENT
  Age: 51 Year
  Sex: Male

DRUGS (1)
  1. STELARA [Suspect]
     Active Substance: USTEKINUMAB
     Indication: PSORIASIS
     Dosage: 1 SYRINGE (90 MG) EVERY 12 WEEKS INJECT SUBCUTANEOUSLY
     Route: 058
     Dates: start: 201701

REACTIONS (4)
  - Device leakage [None]
  - Device defective [None]
  - Drug dose omission [None]
  - Device issue [None]

NARRATIVE: CASE EVENT DATE: 20170209
